FAERS Safety Report 6159924-X (Version None)
Quarter: 2009Q2

REPORT INFORMATION
  Report Type: 
  Country: None (occurrence: None)
  Receive Date: 20090415
  Receipt Date: 20090407
  Transmission Date: 20091009
  Serious: Yes (Life-Threatening, Hospitalization)
  Sender: FDA-Public Use
  Company Number: LTI2009A00108

PATIENT
  Age: 49 Year
  Sex: Female

DRUGS (6)
  1. LANSOPRAZOLE [Suspect]
     Route: 048
  2. MEDIATOR (BENFLUOREX HYDROCHLORIDE) (TABLETS) [Suspect]
     Dosage: 3 IN 1 D
     Route: 048
     Dates: start: 20020101, end: 20030101
  3. LIORESAL [Suspect]
     Dosage: DAYS (DURATION)
     Route: 048
  4. NEURONTIN [Suspect]
     Dosage: DAYS (DURATION)
     Route: 048
     Dates: end: 20030101
  5. URBANYL (CLOBAZAM) (TABLETS) [Suspect]
     Dosage: DAYS (DURATION)
     Route: 048
  6. PREDNISONE [Suspect]
     Dosage: DAYS (DURATION)
     Route: 048

REACTIONS (5)
  - ACUTE PULMONARY OEDEMA [None]
  - AORTIC VALVE INCOMPETENCE [None]
  - MITRAL VALVE INCOMPETENCE [None]
  - MITRAL VALVE STENOSIS [None]
  - TRICUSPID VALVE INCOMPETENCE [None]
